FAERS Safety Report 20734676 (Version 1)
Quarter: 2022Q2

REPORT INFORMATION
  Report Type: Spontaneous
  Country: US (occurrence: None)
  Receive Date: 20220421
  Receipt Date: 20220421
  Transmission Date: 20220721
  Serious: No
  Sender: FDA-Public Use
  Company Number: 2022A147322

PATIENT
  Age: 14121 Day
  Sex: Female
  Weight: 74.8 kg

DRUGS (2)
  1. LYNPARZA [Suspect]
     Active Substance: OLAPARIB
     Indication: BRCA2 gene mutation
     Route: 048
     Dates: start: 20220318, end: 20220319
  2. LYNPARZA [Suspect]
     Active Substance: OLAPARIB
     Indication: BRCA2 gene mutation
     Route: 048
     Dates: start: 20220328

REACTIONS (8)
  - Arthralgia [Recovered/Resolved]
  - Abdominal distension [Recovered/Resolved]
  - Fatigue [Recovered/Resolved]
  - Nausea [Recovered/Resolved]
  - Vomiting [Not Recovered/Not Resolved]
  - Diarrhoea [Not Recovered/Not Resolved]
  - Abdominal pain upper [Not Recovered/Not Resolved]
  - Product dose omission issue [Recovered/Resolved]

NARRATIVE: CASE EVENT DATE: 20220319
